FAERS Safety Report 17397216 (Version 1)
Quarter: 2020Q1

REPORT INFORMATION
  Report Type: Report from Study
  Country: US (occurrence: US)
  Receive Date: 20200210
  Receipt Date: 20200210
  Transmission Date: 20200409
  Serious: Yes (Other)
  Sender: FDA-Public Use
  Company Number: US-BIOGEN-2020BI00835104

PATIENT
  Age: 44 Year
  Sex: Female

DRUGS (31)
  1. VENTOLIN HFA [Concomitant]
     Active Substance: ALBUTEROL SULFATE
     Indication: ASTHMA
     Dosage: VENTOLIN HFA 90 MCG/ ACTUATION INHALER?TAKE 2 PUFFS BY MOUTH EVERY 6 HOURS AS NEEDED
     Route: 055
  2. RELPAX [Concomitant]
     Active Substance: ELETRIPTAN HYDROBROMIDE
     Indication: MIGRAINE
     Dosage: TAKE 1 TABLET (40 MG TOTAL) BY MOUTH AS NEEDED
     Route: 048
  3. CYMBALTA [Concomitant]
     Active Substance: DULOXETINE HYDROCHLORIDE
     Indication: FIBROMYALGIA
     Dosage: TAKE 2 CAPSULES (120 MG TOTAL) BY MOUTH DAILY
     Route: 048
  4. FLOVENT HFA [Concomitant]
     Active Substance: FLUTICASONE PROPIONATE
     Indication: ASTHMA
     Dosage: INHALE 2 PUFFS INTO THE LUNGS 2 (TWO) TIMES A DAY
     Route: 055
  5. LYRICA [Concomitant]
     Active Substance: PREGABALIN
     Indication: PRODUCT USED FOR UNKNOWN INDICATION
     Route: 048
  6. XANAX [Concomitant]
     Active Substance: ALPRAZOLAM
     Indication: PRODUCT USED FOR UNKNOWN INDICATION
     Dosage: TAKE 1 TABLET (1MG TOTAL) BY MOUTH DAILY AS NEEDED
     Route: 048
  7. ZITHROMAX [Concomitant]
     Active Substance: AZITHROMYCIN DIHYDRATE
     Dosage: TAKE 2 TABLETS (500MG) ON DAY 1 THEN 1 TABLET (250MG) ON DAYS 2-5
     Route: 048
  8. REGLAN [Concomitant]
     Active Substance: METOCLOPRAMIDE HYDROCHLORIDE
     Indication: PRODUCT USED FOR UNKNOWN INDICATION
     Dosage: TAKE 1 TABLET BY MOUTH 2 TO 4 TIMES A DAY AS NEEDED FOR MIGRAIN OR FOR NAUSEA
     Route: 048
  9. ZANAFLEX [Concomitant]
     Active Substance: TIZANIDINE HYDROCHLORIDE
     Indication: MUSCLE SPASMS
     Route: 048
  10. ROMYCIN [Concomitant]
     Indication: PRODUCT USED FOR UNKNOWN INDICATION
     Dosage: PLACE 1APPLICATION (0.2G TOTAL) INTO BOTH EYES 3 (THREE) TIMES A DAY FOR 10 DAYS
     Route: 061
  11. PROVENTIL HFA [Concomitant]
     Active Substance: ALBUTEROL SULFATE
     Indication: ASTHMA
     Dosage: PROVENTIL HFA 90 MCG/ ACTUATION INHALER?TAKE 2 PUFFS BY MOUTH EVERY 6 HOURS AS NEEDED
     Route: 055
  12. AIMOVIG [Concomitant]
     Active Substance: ERENUMAB-AOOE
     Indication: PRODUCT USED FOR UNKNOWN INDICATION
     Dosage: AIMOVIG AUTOINJECTOR?INJECT 70MG UNDER THE SKIN EVERY 28 DAYS
     Route: 058
  13. NORETHINDRONE-ETHINYL ESTRADIOL- IRON [Concomitant]
     Indication: PRODUCT USED FOR UNKNOWN INDICATION
     Dosage: NORETHINDRONE-ETHINYL ESTRADIOL- IRON 1MG-10MCG(24)-10MCG(2)
     Route: 048
  14. CORGARD [Concomitant]
     Active Substance: NADOLOL
     Indication: MIGRAINE
     Dosage: TAKE 1 TABLET BY MOUTH EVERY EVENING
     Route: 048
  15. ALDACTONE [Concomitant]
     Active Substance: SPIRONOLACTONE
     Indication: PRODUCT USED FOR UNKNOWN INDICATION
     Dosage: TAKE 1/2 TABLETS (50 MG TOTAL) BY MOUTH 2 (TWO) TIMES A DAY
     Route: 048
  16. NORCO [Concomitant]
     Active Substance: ACETAMINOPHEN\HYDROCODONE BITARTRATE
     Indication: PRODUCT USED FOR UNKNOWN INDICATION
     Dosage: NORCO 10-325MG PER TABLET?TAKE 1 TABLET BY MOUTH EVERY 8 (EIGHT) HOURS AS NEEDED FOR PAIN (TAKE L...
     Route: 048
  17. PLAQUENIL [Concomitant]
     Active Substance: HYDROXYCHLOROQUINE SULFATE
     Indication: CENTRAL NERVOUS SYSTEM LUPUS
     Dosage: TAKE 1 AND 1 HALF TABLET BY MOUTH EVERY MORNING
     Route: 048
  18. SYNTHROID [Concomitant]
     Active Substance: LEVOTHYROXINE SODIUM
     Indication: GOITRE
     Dosage: TAKE 1 TABLET (150 MCG TOTAL) BY MOUTH EVERY MORNING
     Route: 048
  19. TOPAMAX [Concomitant]
     Active Substance: TOPIRAMATE
     Indication: MIGRAINE
     Route: 048
  20. ZOMIG [Concomitant]
     Active Substance: ZOLMITRIPTAN
     Indication: MIGRAINE
     Route: 048
  21. TECFIDERA [Suspect]
     Active Substance: DIMETHYL FUMARATE
     Indication: MULTIPLE SCLEROSIS
     Dosage: TECFIDERA 240MG CAPSULE ?TAKE 1 CAPSULE (240MG) BY MOUTH 2 TIMES A DAY
     Route: 048
     Dates: start: 201901
  22. BUSPAR [Concomitant]
     Active Substance: BUSPIRONE HYDROCHLORIDE
     Indication: PRODUCT USED FOR UNKNOWN INDICATION
     Dosage: TAKE 1 TABLET (15MG TOTAL) BY MOUTH 3 (THREE) TIMES A DAY
     Route: 048
  23. PROVIGIL [Concomitant]
     Active Substance: MODAFINIL
     Indication: MIGRAINE
     Dosage: TAKE 1 TABLET BY MOUTH AT BEDTIME
     Route: 048
  24. GUIAFENESIN AC [Concomitant]
     Indication: COUGH
     Dosage: GUIAFENESIN - CODEINE (GUIAFENESIN AC) 100-10MG/ 5ML LIQUID?TAKE 5ML BY MOUTH NIGHTLY AS NEEDED F...
     Route: 048
  25. ELAVIL [Concomitant]
     Active Substance: AMITRIPTYLINE HYDROCHLORIDE
     Indication: MIGRAINE
     Dosage: TAKE 1 TABLET (100 MG TOTAL) BY MOUTH NIGHTLY AT BEDTIME
     Route: 048
  26. ZITHROMAX [Concomitant]
     Active Substance: AZITHROMYCIN DIHYDRATE
     Indication: PRODUCT USED FOR UNKNOWN INDICATION
     Dosage: TAKE 2 TABLETS (500MG) ON DAY 1 THEN 1 TABLET (250MG) ON DAYS 2-5
     Route: 048
  27. LEVOTHROID [Concomitant]
     Active Substance: LEVOTHYROXINE SODIUM
     Indication: GOITRE
     Dosage: TAKE 1 TABLET (150 MCG TOTAL) BY MOUTH EVERY MORNING
     Route: 048
  28. SINGULAIR [Concomitant]
     Active Substance: MONTELUKAST SODIUM
     Indication: ASTHMA
     Dosage: TAKE 1 TABLET (10 MG TOTAL) BY MOUTH NIGHTLY AT BEDTIME
     Route: 048
  29. NARCAN [Concomitant]
     Active Substance: NALOXONE HYDROCHLORIDE
     Indication: PRODUCT USED FOR UNKNOWN INDICATION
     Dosage: 1 SPRAY TO NOSE PM FOR OPIOID OVERDOSE - REPEAT PRN. CALL 911. MEDICATION IS PROVIDED PER CDC GUI...
     Route: 045
  30. TAMIFLU [Concomitant]
     Active Substance: OSELTAMIVIR PHOSPHATE
     Indication: PRODUCT USED FOR UNKNOWN INDICATION
     Dosage: TAKE 1 CAPSULE (75 MG TOTAL) BY MOUTH 2 (TWO) TIMES A DAY
     Route: 048
  31. PROTONIX [Concomitant]
     Active Substance: PANTOPRAZOLE SODIUM
     Indication: PRODUCT USED FOR UNKNOWN INDICATION
     Route: 048

REACTIONS (1)
  - Intracranial aneurysm [Unknown]

NARRATIVE: CASE EVENT DATE: 20190627
